FAERS Safety Report 23621141 (Version 3)
Quarter: 2024Q2

REPORT INFORMATION
  Report Type: Spontaneous
  Country: US (occurrence: US)
  Receive Date: 20240312
  Receipt Date: 20240506
  Transmission Date: 20240716
  Serious: Yes (Other)
  Sender: FDA-Public Use
  Company Number: US-UCBSA-2024011548

PATIENT
  Age: 44 Year
  Sex: Male

DRUGS (5)
  1. BIMZELX [Suspect]
     Active Substance: BIMEKIZUMAB-BKZX
     Indication: Psoriasis
     Dosage: 320 MILLIGRAM, EV 4 WEEKS
     Route: 058
     Dates: start: 202402
  2. CIMZIA [Suspect]
     Active Substance: CERTOLIZUMAB PEGOL
     Indication: Psoriasis
     Dosage: 400 MILLIGRAM, EV 2 WEEKS(QOW)
     Dates: start: 20230726, end: 20240212
  3. CELLCEPT [Concomitant]
     Active Substance: MYCOPHENOLATE MOFETIL
     Indication: Renal transplant
     Dosage: 1 GRAM, 2X/DAY (BID)
  4. PREDNISONE [Concomitant]
     Active Substance: PREDNISONE
     Indication: Renal transplant
     Dosage: 5 MILLIGRAM, ONCE DAILY (QD)
  5. TACROLIMUS [Concomitant]
     Active Substance: TACROLIMUS
     Indication: Renal transplant
     Dosage: 1.5 MILLIGRAM, 2X/DAY (BID)

REACTIONS (2)
  - Organ transplant [Unknown]
  - Latent tuberculosis [Recovering/Resolving]

NARRATIVE: CASE EVENT DATE: 20240210
